FAERS Safety Report 14310893 (Version 1)
Quarter: 2017Q4

REPORT INFORMATION
  Report Type: Spontaneous
  Country: GB (occurrence: GB)
  Receive Date: 20171221
  Receipt Date: 20171221
  Transmission Date: 20180321
  Serious: Yes (Hospitalization)
  Sender: FDA-Public Use
  Company Number: GB-ASTRAZENECA-2017SF27753

PATIENT
  Age: 42 Year
  Sex: Male

DRUGS (3)
  1. ARIPIPRAZOLE. [Suspect]
     Active Substance: ARIPIPRAZOLE
     Indication: SCHIZOPHRENIA
     Dosage: 15 MG, DAILY, INCREASED TO 30 MG/DAY AFTER ONE WEEK.
     Route: 048
  2. QUETIAPINE. [Suspect]
     Active Substance: QUETIAPINE
     Indication: SCHIZOPHRENIA
     Route: 048
  3. CLOZAPINE. [Suspect]
     Active Substance: CLOZAPINE
     Indication: SCHIZOPHRENIA
     Dosage: UNK
     Route: 065

REACTIONS (7)
  - Disturbance in attention [Unknown]
  - Schizophrenia [Unknown]
  - Hallucination [Unknown]
  - Muscle rigidity [Unknown]
  - Blood creatine phosphokinase increased [Recovered/Resolved]
  - Tardive dyskinesia [Unknown]
  - Social avoidant behaviour [Unknown]
